FAERS Safety Report 18109087 (Version 1)
Quarter: 2020Q3

REPORT INFORMATION
  Report Type: Spontaneous
  Country: CA (occurrence: CA)
  Receive Date: 20200804
  Receipt Date: 20200804
  Transmission Date: 20201103
  Serious: Yes (Hospitalization)
  Sender: FDA-Public Use
  Company Number: CA-ASTRAZENECA-2020SE94906

PATIENT
  Age: 68 Year
  Sex: Female
  Weight: 90 kg

DRUGS (8)
  1. CELECOXIB. [Concomitant]
     Active Substance: CELECOXIB
  2. ROSUVASTATIN. [Suspect]
     Active Substance: ROSUVASTATIN
     Route: 048
  3. BISOPROLOL [Concomitant]
     Active Substance: BISOPROLOL
  4. EZETIMIBE. [Concomitant]
     Active Substance: EZETIMIBE
  5. LYRICA [Concomitant]
     Active Substance: PREGABALIN
  6. PANTOPRAZOLE [Concomitant]
     Active Substance: PANTOPRAZOLE
     Route: 042
  7. VITAMIN D [Concomitant]
     Active Substance: VITAMIN D NOS
  8. IMFINZI [Suspect]
     Active Substance: DURVALUMAB
     Indication: LUNG SQUAMOUS CELL CARCINOMA STAGE III
     Dosage: 900.0 MILLIGRAMS TWO TIMES IN TWO WEEKS
     Route: 042

REACTIONS (7)
  - Diplopia [Unknown]
  - Muscular weakness [Unknown]
  - Visual impairment [Unknown]
  - Mobility decreased [Unknown]
  - Myasthenia gravis [Unknown]
  - Hemiparesis [Unknown]
  - Sensory loss [Unknown]
